FAERS Safety Report 10521884 (Version 1)
Quarter: 2014Q4

REPORT INFORMATION
  Report Type: Spontaneous
  Country: ES (occurrence: None)
  Receive Date: 20141014
  Receipt Date: 20141014
  Transmission Date: 20150528
  Serious: Yes (Other)
  Sender: FDA-Public Use
  Company Number: 2014SIL00009

PATIENT
  Age: 38 Year
  Sex: Male

DRUGS (1)
  1. ENALAPRIL (ENALAPRIL) UNKNOWN [Suspect]
     Active Substance: ENALAPRIL

REACTIONS (3)
  - Dysphonia [None]
  - Hiccups [None]
  - Choking [None]
